FAERS Safety Report 9840031 (Version 2)
Quarter: 2014Q1

REPORT INFORMATION
  Report Type: Spontaneous
  Country: US (occurrence: None)
  Receive Date: 20131211
  Receipt Date: 20131211
  Transmission Date: 20141002
  Serious: No
  Sender: FDA-Public Use
  Company Number: ALL1-2012-03015

PATIENT
  Age: 71 Year
  Sex: Female

DRUGS (1)
  1. FIRAZYR [Suspect]
     Indication: HEREDITARY ANGIOEDEMA
     Route: 058

REACTIONS (3)
  - Somnolence [None]
  - Dizziness [None]
  - Fatigue [None]
